FAERS Safety Report 18701656 (Version 1)
Quarter: 2021Q1

REPORT INFORMATION
  Report Type: Spontaneous
  Country: DK (occurrence: DK)
  Receive Date: 20210105
  Receipt Date: 20210105
  Transmission Date: 20210419
  Serious: Yes (Hospitalization)
  Sender: FDA-Public Use
  Company Number: NVSC2020DK343978

PATIENT
  Age: 54 Year
  Sex: Male

DRUGS (1)
  1. CORODIL [ENALAPRIL] [Suspect]
     Active Substance: ENALAPRIL
     Indication: HYPERTENSION
     Dosage: UNK (STRENGTH AND DOSAGE:UNKNOWN)
     Route: 048
     Dates: start: 2006, end: 20130718

REACTIONS (6)
  - Prosopagnosia [Unknown]
  - Hallucination [Unknown]
  - Altered state of consciousness [Unknown]
  - Insomnia [Unknown]
  - Disorientation [Unknown]
  - Delirium [Unknown]

NARRATIVE: CASE EVENT DATE: 201305
